FAERS Safety Report 7383248-6 (Version None)
Quarter: 2011Q1

REPORT INFORMATION
  Report Type: 
  Country: None (occurrence: None)
  Receive Date: 20110330
  Receipt Date: 20110318
  Transmission Date: 20110831
  Serious: Yes (Other)
  Sender: FDA-Public Use
  Company Number: PHHY2011GB20947

PATIENT
  Age: 26 Year
  Sex: Female

DRUGS (6)
  1. CLOBAZAM [Interacting]
     Indication: EPILEPSY
     Dosage: 10 MG, UNK
  2. LACOSAMIDE [Suspect]
     Indication: EPILEPSY
  3. LEVETIRACETAM [Interacting]
     Indication: EPILEPSY
     Dosage: 2500 MG, DAILY
  4. OXCARBAZEPINE [Interacting]
     Dosage: 1350 MG, UNK
  5. OXCARBAZEPINE [Suspect]
     Indication: EPILEPSY
     Dosage: 1800 MG, UNK
  6. OXCARBAZEPINE [Interacting]
     Dosage: 1500 MG, UNK

REACTIONS (4)
  - DRUG INTERACTION [None]
  - DIPLOPIA [None]
  - NEUROTOXICITY [None]
  - ATAXIA [None]
